FAERS Safety Report 9616767 (Version 1)
Quarter: 2013Q4

REPORT INFORMATION
  Report Type: Spontaneous
  Country: TH (occurrence: TH)
  Receive Date: 20131011
  Receipt Date: 20131011
  Transmission Date: 20140711
  Serious: Yes (Death)
  Sender: FDA-Public Use
  Company Number: TH-BAXTER-2013BAX039927

PATIENT
  Age: 66 Year
  Sex: Male

DRUGS (1)
  1. DIANEAL LOW CALCIUM (2.5 PERCENT MEQ/L) PERITONEAL DIALYSIS SOL WITH 1 [Suspect]
     Indication: PERITONEAL DIALYSIS
     Route: 033
     Dates: start: 20100312, end: 20100320

REACTIONS (1)
  - Infection [Fatal]
